FAERS Safety Report 6970371-0 (Version None)
Quarter: 2010Q3

REPORT INFORMATION
  Report Type: 
  Country: None (occurrence: None)
  Receive Date: 20100908
  Receipt Date: 20100810
  Transmission Date: 20110219
  Serious: Yes (Other)
  Sender: FDA-Public Use
  Company Number: PHEH2006US07278

PATIENT
  Sex: Female
  Weight: 63.492 kg

DRUGS (14)
  1. AREDIA [Suspect]
     Indication: BREAST CANCER
     Dosage: 90 MG, QMO
     Route: 042
     Dates: start: 19981001, end: 20020315
  2. ZOMETA [Suspect]
     Indication: BREAST CANCER
     Dosage: 4 MG, QMO
     Route: 042
     Dates: start: 20020417, end: 20050325
  3. ZOMETA [Suspect]
     Dates: start: 20050325, end: 20050425
  4. TAMOXIFEN CITRATE [Concomitant]
     Dosage: 10 MG, BID
     Route: 048
  5. FEMARA [Concomitant]
     Indication: BREAST CANCER
     Dosage: 2.5 MG, QD
     Route: 048
  6. FOLIC ACID [Concomitant]
  7. QUININE [Concomitant]
  8. ALLEGRA [Concomitant]
  9. ZOCOR [Concomitant]
  10. CHLORHEXIDINE GLUCONATE [Concomitant]
  11. ANAESTHETICS, LOCAL [Concomitant]
  12. CITALOPRAM HYDROBROMIDE [Concomitant]
  13. CALCIUM [Concomitant]
  14. VITAMINS [Concomitant]

REACTIONS (45)
  - ADRENAL ADENOMA [None]
  - ADRENALECTOMY [None]
  - ANXIETY [None]
  - ARTHRALGIA [None]
  - BACK PAIN [None]
  - BLOOD CREATININE INCREASED [None]
  - BONE DISORDER [None]
  - DECREASED INTEREST [None]
  - DENTAL CARE [None]
  - DENTAL OPERATION [None]
  - DEPRESSION [None]
  - ECZEMA [None]
  - ESCHERICHIA INFECTION [None]
  - GASTRIC VARICES [None]
  - GENERAL PHYSICAL HEALTH DETERIORATION [None]
  - GINGIVAL DISORDER [None]
  - HYPERLIPIDAEMIA [None]
  - IMPAIRED HEALING [None]
  - INFECTION [None]
  - JAW DISORDER [None]
  - LOCAL SWELLING [None]
  - LUMBAR SPINAL STENOSIS [None]
  - LYMPHOEDEMA [None]
  - MASS EXCISION [None]
  - MASTICATION DISORDER [None]
  - MOBILITY DECREASED [None]
  - ORAL SURGERY [None]
  - OSTEITIS [None]
  - OSTEONECROSIS OF JAW [None]
  - PAIN [None]
  - PERIODONTITIS [None]
  - PYELONEPHRITIS [None]
  - SKIN EXFOLIATION [None]
  - SPINAL OSTEOARTHRITIS [None]
  - SPONDYLOLISTHESIS [None]
  - SUBCLAVIAN VEIN THROMBOSIS [None]
  - TENDERNESS [None]
  - THYROID ADENOMA [None]
  - TOOTH DISORDER [None]
  - TOOTH EXTRACTION [None]
  - TOOTH IMPACTED [None]
  - TOOTH LOSS [None]
  - TOOTH RESORPTION [None]
  - UPPER LIMB FRACTURE [None]
  - VENOUS THROMBOSIS [None]
